FAERS Safety Report 7375879-4 (Version None)
Quarter: 2011Q1

REPORT INFORMATION
  Report Type: 
  Country: None (occurrence: None)
  Receive Date: 20110325
  Receipt Date: 20110317
  Transmission Date: 20110831
  Serious: Yes (Other)
  Sender: FDA-Public Use
  Company Number: A0919753A

PATIENT
  Age: 77 Year
  Sex: Male
  Weight: 87.1 kg

DRUGS (14)
  1. PAZOPANIB [Suspect]
     Dosage: 600MG PER DAY
     Route: 048
     Dates: start: 20110217
  2. FOLIC ACID [Concomitant]
  3. VITAMIN B-12 [Concomitant]
  4. TRAZODONE [Concomitant]
  5. HYDROCHLOROTHIAZIDE [Concomitant]
  6. FISH OIL [Concomitant]
  7. RED YEAST RICE [Concomitant]
  8. VITAMIN D [Concomitant]
  9. EVEROLIMUS [Suspect]
     Dosage: 5MG PER DAY
     Route: 048
     Dates: start: 20110217
  10. AMLODIPINE [Concomitant]
  11. DIOVAN [Concomitant]
  12. LORAZEPAM [Concomitant]
  13. MILK THISTLE [Concomitant]
  14. ASCORBIC ACID [Concomitant]

REACTIONS (1)
  - BLOOD URIC ACID INCREASED [None]
